FAERS Safety Report 8159141-8 (Version None)
Quarter: 2012Q1

REPORT INFORMATION
  Report Type: 
  Country: None (occurrence: None)
  Receive Date: 20120103
  Receipt Date: 20111101
  Transmission Date: 20120608
  Serious: No
  Sender: FDA-Public Use
  Company Number: AE-2011-002955

PATIENT
  Age: 52 Year
  Sex: Female
  Weight: 81.6475 kg

DRUGS (8)
  1. INCIVEK [Suspect]
     Dosage: 2250 MG (750 MG, 1 IN 8 HR), ORAL
     Route: 048
     Dates: start: 20110925
  2. COZAAR [Concomitant]
  3. PEGASYS [Concomitant]
  4. ZOLOFT [Concomitant]
  5. COPEGUS [Concomitant]
  6. PREVACID [Concomitant]
  7. AMLODIPINE [Concomitant]
  8. MIRTAZAPINE [Concomitant]

REACTIONS (7)
  - HOT FLUSH [None]
  - FATIGUE [None]
  - RASH PRURITIC [None]
  - DIZZINESS [None]
  - NAUSEA [None]
  - VOMITING [None]
  - INAPPROPRIATE SCHEDULE OF DRUG ADMINISTRATION [None]
